FAERS Safety Report 10204371 (Version 2)
Quarter: 2014Q3

REPORT INFORMATION
  Report Type: Spontaneous
  Country: FR (occurrence: FR)
  Receive Date: 20140529
  Receipt Date: 20140827
  Transmission Date: 20150326
  Serious: Yes (Life-Threatening)
  Sender: FDA-Public Use
  Company Number: FR-009507513-1405FRA013992

PATIENT
  Sex: Female

DRUGS (7)
  1. CORTANCYL [Suspect]
     Active Substance: PREDNISONE
     Dosage: 120 MG, QD
     Route: 048
     Dates: start: 201401
  2. KEPPRA [Concomitant]
     Active Substance: LEVETIRACETAM
     Dosage: 500 MG, UNK
     Route: 065
  3. TEMODAL [Suspect]
     Active Substance: TEMOZOLOMIDE
     Dosage: 250 MG, QD
     Route: 048
     Dates: start: 20140215, end: 20140219
  4. AVASTIN [Suspect]
     Active Substance: BEVACIZUMAB
     Dosage: 1 DF, ONCE
     Route: 042
     Dates: start: 20140213, end: 20140213
  5. INNOHEP [Suspect]
     Active Substance: TINZAPARIN SODIUM
     Indication: THROMBOSIS PROPHYLAXIS
     Dosage: 1 DF, QD
     Route: 058
  6. LEVOTHYROX [Concomitant]
     Active Substance: LEVOTHYROXINE
     Dosage: 75 MICROGRAM, UNK
     Route: 065
  7. ZITHROMAX [Concomitant]
     Active Substance: AZITHROMYCIN DIHYDRATE
     Dosage: 250 MG, UNK
     Route: 065

REACTIONS (3)
  - Shock haemorrhagic [Recovered/Resolved]
  - Duodenal ulcer [Recovered/Resolved]
  - Gastrointestinal haemorrhage [Recovered/Resolved]
